FAERS Safety Report 11695879 (Version 2)
Quarter: 2016Q4

REPORT INFORMATION
  Report Type: Spontaneous
  Country: US (occurrence: US)
  Receive Date: 20151104
  Receipt Date: 20161222
  Transmission Date: 20170206
  Serious: Yes (Other)
  Sender: FDA-Public Use
  Company Number: US-DRREDDYS-USA/USA/15/0053750

PATIENT
  Age: 9 Year

DRUGS (1)
  1. SILDENAFIL. [Suspect]
     Active Substance: SILDENAFIL
     Indication: VASCULAR MALFORMATION
     Dosage: 10 - 20 MG THRICE DAILY
     Route: 065

REACTIONS (5)
  - Drug ineffective for unapproved indication [Unknown]
  - Haemorrhage [Unknown]
  - Coagulopathy [Unknown]
  - Off label use [Unknown]
  - Product quality issue [Unknown]
